FAERS Safety Report 5192107-9 (Version None)
Quarter: 2006Q4

REPORT INFORMATION
  Report Type: 
  Country: None (occurrence: None)
  Receive Date: 20061220
  Receipt Date: 20061205
  Transmission Date: 20070319
  Serious: Yes (Other)
  Sender: FDA-Public Use
  Company Number: 2006US002861

PATIENT
  Age: 57 Year
  Sex: Male

DRUGS (1)
  1. AMEVIVE [Suspect]
     Indication: PSORIASIS

REACTIONS (3)
  - BURSITIS INFECTIVE [None]
  - CD4 LYMPHOCYTES DECREASED [None]
  - MYCOBACTERIUM AVIUM COMPLEX INFECTION [None]
